FAERS Safety Report 16810182 (Version 2)
Quarter: 2019Q3

REPORT INFORMATION
  Report Type: Spontaneous
  Country: US (occurrence: US)
  Receive Date: 20190916
  Receipt Date: 20190923
  Transmission Date: 20191005
  Serious: No
  Sender: FDA-Public Use
  Company Number: US-PFIZER INC-2019395327

PATIENT
  Age: 73 Year
  Sex: Female

DRUGS (14)
  1. FELDENE [Suspect]
     Active Substance: PIROXICAM
     Dosage: UNK
  2. KEFLEX [Suspect]
     Active Substance: CEPHALEXIN
     Dosage: UNK
  3. LEVAQUIN [Suspect]
     Active Substance: LEVOFLOXACIN
     Dosage: UNK
  4. DOLOBID [Suspect]
     Active Substance: DIFLUNISAL
     Dosage: UNK
  5. GANTRISIN [Suspect]
     Active Substance: SULFISOXAZOLE ACETYL
     Dosage: UNK
  6. ERYTHROMYCIN. [Suspect]
     Active Substance: ERYTHROMYCIN
     Dosage: UNK
  7. AMOXICILLIN. [Suspect]
     Active Substance: AMOXICILLIN
     Dosage: UNK
  8. AUGMENTIN [Suspect]
     Active Substance: AMOXICILLIN\CLAVULANATE POTASSIUM
     Dosage: UNK
  9. IODINE. [Suspect]
     Active Substance: IODINE
     Dosage: UNK
  10. AMITRIPTYLINE HCL [Suspect]
     Active Substance: AMITRIPTYLINE
     Dosage: UNK
  11. CODEINE [Suspect]
     Active Substance: CODEINE
     Dosage: UNK
  12. FLAGYL [Suspect]
     Active Substance: METRONIDAZOLE\METRONIDAZOLE HYDROCHLORIDE
     Dosage: UNK
  13. LIDOCAINE HCL [Suspect]
     Active Substance: LIDOCAINE HYDROCHLORIDE
     Dosage: UNK
  14. EPINEPHRINE. [Suspect]
     Active Substance: EPINEPHRINE
     Dosage: UNK

REACTIONS (1)
  - Drug hypersensitivity [Unknown]
